FAERS Safety Report 8451829 (Version 2)
Quarter: 2016Q4

REPORT INFORMATION
  Report Type: Spontaneous
  Country: US (occurrence: US)
  Receive Date: 20120309
  Receipt Date: 20161220
  Transmission Date: 20170207
  Serious: Yes (Other)
  Sender: FDA-Public Use
  Company Number: US-ROCHE-1040748

PATIENT
  Age: 47 Year
  Sex: Male
  Weight: 90 kg

DRUGS (1)
  1. ZELBORAF [Suspect]
     Active Substance: VEMURAFENIB
     Indication: METASTATIC MALIGNANT MELANOMA
     Route: 048

REACTIONS (3)
  - Hyperkeratosis [Not Recovered/Not Resolved]
  - Keratosis follicular [Not Recovered/Not Resolved]
  - Keratoacanthoma [Not Recovered/Not Resolved]

NARRATIVE: CASE EVENT DATE: 20120114
